FAERS Safety Report 15314230 (Version 4)
Quarter: 2019Q1

REPORT INFORMATION
  Report Type: Spontaneous
  Country: US (occurrence: US)
  Receive Date: 20180824
  Receipt Date: 20190122
  Transmission Date: 20190417
  Serious: No
  Sender: FDA-Public Use
  Company Number: US-PFIZER INC-2018340173

PATIENT
  Age: 54 Year
  Sex: Male

DRUGS (3)
  1. LYRICA [Suspect]
     Active Substance: PREGABALIN
     Dosage: 75 MG, 3X/DAY (1 CAPSULE 3 TIMES EACH DAY)
  2. LYRICA [Suspect]
     Active Substance: PREGABALIN
     Dosage: 225 MG, DAILY (75 MG A.M AND 150 MG EVERY BEDTIME.)
  3. LYRICA [Suspect]
     Active Substance: PREGABALIN
     Dosage: 75 MG, 2X/DAY

REACTIONS (9)
  - Fatigue [Not Recovered/Not Resolved]
  - Musculoskeletal pain [Not Recovered/Not Resolved]
  - Drug effect incomplete [Unknown]
  - Therapeutic response unexpected [Unknown]
  - Myalgia [Not Recovered/Not Resolved]
  - Somnolence [Unknown]
  - Joint noise [Not Recovered/Not Resolved]
  - Pain [Not Recovered/Not Resolved]
  - Pre-existing condition improved [Unknown]
